FAERS Safety Report 7358988-5 (Version None)
Quarter: 2011Q1

REPORT INFORMATION
  Report Type: 
  Country: None (occurrence: None)
  Receive Date: 20110317
  Receipt Date: 20101005
  Transmission Date: 20110831
  Serious: Yes (Hospitalization, Other)
  Sender: FDA-Public Use
  Company Number: US-BAYER-201028341NA

PATIENT
  Sex: Female
  Weight: 56.689 kg

DRUGS (17)
  1. OCELLA [Suspect]
     Indication: ACNE
  2. CIPRO [Concomitant]
     Dosage: UNK
     Dates: start: 20080827
  3. FLAGYL [Concomitant]
     Dosage: UNK
     Dates: start: 20080827
  4. ACIPHEX [Concomitant]
     Dosage: UNK
     Dates: start: 20080827
  5. YASMIN [Suspect]
     Indication: MENSTRUATION IRREGULAR
  6. OCELLA [Suspect]
     Indication: DYSMENORRHOEA
     Dosage: UNK
     Dates: start: 20080808
  7. ANESTHETICS, GENERAL [Concomitant]
     Dosage: UNK
     Dates: start: 20080829
  8. YAZ [Suspect]
     Indication: DYSMENORRHOEA
     Route: 048
  9. HYDROCODONE BITARTRATE [Concomitant]
     Indication: PAIN MANAGEMENT
  10. YASMIN [Suspect]
     Indication: DYSMENORRHOEA
     Route: 048
     Dates: start: 20070801, end: 20091001
  11. YASMIN [Suspect]
     Indication: ACNE
  12. OCELLA [Suspect]
     Indication: MENSTRUATION IRREGULAR
  13. YAZ [Suspect]
     Indication: ACNE
  14. UNCODEABLE ^UNCLASSIFIABLE^ [Concomitant]
  15. OXYCODONE HCL [Concomitant]
     Indication: PAIN MANAGEMENT
  16. YAZ [Suspect]
     Indication: MENSTRUATION IRREGULAR
  17. ALEVE [Concomitant]

REACTIONS (1)
  - GALLBLADDER INJURY [None]
